FAERS Safety Report 12014231 (Version 1)
Quarter: 2016Q1

REPORT INFORMATION
  Report Type: Other
  Country: CA (occurrence: CA)
  Receive Date: 20160205
  Receipt Date: 20160205
  Transmission Date: 20160526
  Serious: Yes (Hospitalization, Other)
  Sender: FDA-Public Use
  Company Number: CA-DUCHESNAY INC.-1047391

PATIENT
  Age: 26 Year
  Sex: Female
  Weight: 80 kg

DRUGS (15)
  1. APO-SALVENT [Suspect]
     Active Substance: ALBUTEROL
  2. BETADERM [Suspect]
     Active Substance: BETAMETHASONE VALERATE
  3. OMEPRAZOLE. [Suspect]
     Active Substance: OMEPRAZOLE
     Route: 048
  4. REMICADE [Suspect]
     Active Substance: INFLIXIMAB
     Route: 042
  5. ZOPICLONE [Suspect]
     Active Substance: ZOPICLONE
     Route: 048
  6. DICLEGIS [Suspect]
     Active Substance: DOXYLAMINE SUCCINATE\PYRIDOXINE HYDROCHLORIDE
     Indication: NAUSEA
  7. CELEXA [Suspect]
     Active Substance: CITALOPRAM HYDROBROMIDE
  8. TYLENOL [Suspect]
     Active Substance: ACETAMINOPHEN
  9. PREDNISONE. [Suspect]
     Active Substance: PREDNISONE
     Route: 048
  10. IRON [Suspect]
     Active Substance: IRON
  11. OXAZEPAM. [Suspect]
     Active Substance: OXAZEPAM
     Route: 048
  12. ATENOLOL TABLETS BP [Suspect]
     Active Substance: ATENOLOL
  13. FLOVENT [Suspect]
     Active Substance: FLUTICASONE PROPIONATE
  14. IMURAN [Suspect]
     Active Substance: AZATHIOPRINE
     Route: 048
  15. TORADOL [Suspect]
     Active Substance: KETOROLAC TROMETHAMINE

REACTIONS (9)
  - Depression [Recovered/Resolved]
  - Concussion [Recovered/Resolved]
  - Abdominal pain [Recovered/Resolved]
  - Diarrhoea [Recovered/Resolved]
  - Haemoglobin decreased [Recovered/Resolved]
  - Nausea [Recovered/Resolved]
  - Dehydration [Recovered/Resolved]
  - Rectal haemorrhage [Recovered/Resolved]
  - Maternal exposure during pregnancy [None]
